FAERS Safety Report 4760043-5 (Version None)
Quarter: 2005Q3

REPORT INFORMATION
  Report Type: 
  Country: None (occurrence: None)
  Receive Date: 20050902
  Receipt Date: 20050824
  Transmission Date: 20060218
  Serious: Yes (Other)
  Sender: FDA-Public Use
  Company Number: US-JNJFOC-20050805740

PATIENT
  Age: 67 Year
  Sex: Female
  Weight: 76.66 kg

DRUGS (5)
  1. REMICADE [Suspect]
     Route: 042
  2. REMICADE [Suspect]
     Indication: RHEUMATOID ARTHRITIS
     Route: 042
  3. METHOTREXATE [Concomitant]
     Indication: RHEUMATOID ARTHRITIS
     Dosage: 2.5 TABLETS, 10 IN 1 WEEKS
  4. GLYBURIDE [Concomitant]
     Indication: DIABETES MELLITUS
  5. ACTOSE [Concomitant]
     Indication: DIABETES MELLITUS

REACTIONS (7)
  - LOSS OF CONSCIOUSNESS [None]
  - MELAENA [None]
  - NIGHT SWEATS [None]
  - PANCYTOPENIA [None]
  - PLEURAL EFFUSION [None]
  - PNEUMONIA [None]
  - PYREXIA [None]
